FAERS Safety Report 9957630 (Version 2)
Quarter: 2014Q1

REPORT INFORMATION
  Report Type: Report from Study
  Country: US (occurrence: US)
  Receive Date: 20140304
  Receipt Date: 20140304
  Transmission Date: 20141002
  Serious: No
  Sender: FDA-Public Use
  Company Number: US-ABBVIE-13P-163-1038498-00

PATIENT
  Age: 39 Year
  Sex: Female

DRUGS (3)
  1. HUMIRA [Suspect]
     Indication: CROHN^S DISEASE
     Route: 058
     Dates: start: 20121228, end: 20121228
  2. HUMIRA [Suspect]
     Dates: start: 20130111, end: 20130111
  3. HUMIRA [Suspect]
     Dates: start: 20130125

REACTIONS (4)
  - Restlessness [Not Recovered/Not Resolved]
  - Injection site bruising [Unknown]
  - Injection site pain [Not Recovered/Not Resolved]
  - Poor quality sleep [Recovered/Resolved]
